FAERS Safety Report 4954630-9 (Version None)
Quarter: 2006Q1

REPORT INFORMATION
  Report Type: 
  Country: None (occurrence: None)
  Receive Date: 20060322
  Receipt Date: 20060308
  Transmission Date: 20060701
  Serious: Yes (Hospitalization)
  Sender: FDA-Public Use
  Company Number: JP200603002261

PATIENT
  Age: 53 Year
  Sex: Female

DRUGS (2)
  1. EVISTA [Suspect]
     Indication: OSTEOPOROSIS
     Dosage: 60 MG, DAILY (1/D), ORAL
     Route: 048
     Dates: start: 20040913, end: 20041201
  2. NSAID'S [Concomitant]

REACTIONS (7)
  - CONDITION AGGRAVATED [None]
  - GLUCOSE TOLERANCE IMPAIRED [None]
  - HEPATIC CIRRHOSIS [None]
  - HEPATIC FIBROSIS [None]
  - HEPATIC STEATOSIS [None]
  - INSULIN RESISTANCE [None]
  - PANCREATIC ENLARGEMENT [None]
